FAERS Safety Report 7522942-0 (Version None)
Quarter: 2011Q2

REPORT INFORMATION
  Report Type: 
  Country: None (occurrence: None)
  Receive Date: 20110603
  Receipt Date: 20110524
  Transmission Date: 20111010
  Serious: Yes (Other)
  Sender: FDA-Public Use
  Company Number: US-JNJFOC-20110303467

PATIENT
  Sex: Female
  Weight: 136.08 kg

DRUGS (2)
  1. BYETTA [Concomitant]
  2. STELARA [Suspect]
     Indication: PSORIASIS
     Route: 058
     Dates: start: 20100408, end: 20101022

REACTIONS (1)
  - BREAST CANCER [None]
